FAERS Safety Report 7039235-0 (Version None)
Quarter: 2010Q4

REPORT INFORMATION
  Report Type: 
  Country: None (occurrence: None)
  Receive Date: 20101012
  Receipt Date: 20100930
  Transmission Date: 20110411
  Serious: Yes (Other)
  Sender: FDA-Public Use
  Company Number: US-PFIZER INC-2010124559

PATIENT
  Sex: Female
  Weight: 62.132 kg

DRUGS (10)
  1. DEPO-ESTRADIOL [Suspect]
     Indication: HORMONE REPLACEMENT THERAPY
     Dosage: 1 MG, EVERY 3 WEEKS
     Route: 030
     Dates: start: 20040101
  2. DEPO-ESTRADIOL [Suspect]
     Dosage: 5 MG, EVERY 3 WEEKS
     Route: 030
  3. LEVOXYL [Concomitant]
     Indication: THYROIDECTOMY
     Dosage: 1.5 MG, 1X/DAY
     Route: 048
     Dates: start: 19980101
  4. PROPRANOLOL [Concomitant]
     Indication: MIGRAINE
     Dosage: 60 MG, 1X/DAY
     Dates: start: 20090101
  5. TOPAMAX [Concomitant]
     Indication: MIGRAINE
     Dosage: 100 MG, 2X/DAY
  6. PROZAC [Concomitant]
     Indication: DEPRESSION
     Dosage: 40 MG, 1X/DAY
  7. LOCALYN [Concomitant]
     Indication: DYSPEPSIA
     Dosage: 150 MG, 2X/DAY
  8. AMBIEN [Concomitant]
     Indication: SLEEP DISORDER
     Dosage: 10 MG, 1X/DAY
     Route: 048
     Dates: start: 20100101
  9. VALIUM [Concomitant]
     Indication: ANXIETY
     Dosage: 10 MG, AS NEEDED
     Route: 048
     Dates: start: 20080101
  10. TYLENOL [Concomitant]
     Indication: BACK PAIN
     Dosage: UNK

REACTIONS (8)
  - CONDITION AGGRAVATED [None]
  - CRYING [None]
  - DRUG INEFFECTIVE [None]
  - FEELING ABNORMAL [None]
  - HOT FLUSH [None]
  - IRRITABILITY [None]
  - MIGRAINE [None]
  - SKIN BURNING SENSATION [None]
